FAERS Safety Report 7993155-3 (Version None)
Quarter: 2011Q4

REPORT INFORMATION
  Report Type: 
  Country: None (occurrence: None)
  Receive Date: 20111219
  Receipt Date: 20101213
  Transmission Date: 20120403
  Serious: No
  Sender: FDA-Public Use
  Company Number: US-ASTRAZENECA-2010SE58937

PATIENT
  Age: 71 Year
  Sex: Female
  Weight: 135 kg

DRUGS (2)
  1. ZOLIDINE [Concomitant]
     Indication: SLEEP DISORDER
  2. CRESTOR [Suspect]
     Indication: HYPERCHOLESTEROLAEMIA
     Route: 048
     Dates: start: 20100501

REACTIONS (3)
  - IRRITABLE BOWEL SYNDROME [None]
  - DIVERTICULUM [None]
  - ABDOMINAL PAIN UPPER [None]
